FAERS Safety Report 10035009 (Version 1)
Quarter: 2014Q1

REPORT INFORMATION
  Report Type: Spontaneous
  Country: US (occurrence: None)
  Receive Date: 20140321
  Receipt Date: 20140321
  Transmission Date: 20141002
  Serious: Yes (Other)
  Sender: FDA-Public Use
  Company Number: AUR-APL-2014-03117

PATIENT
  Age: 27 Year
  Sex: Female

DRUGS (2)
  1. LAMOTRIGINE [Suspect]
     Indication: JUVENILE MYOCLONIC EPILEPSY
     Dosage: (500 MG, 1 D), UNKNOWN
  2. VALPROATE (VALPROATE SODIUM) [Concomitant]

REACTIONS (10)
  - Dizziness [None]
  - Coordination abnormal [None]
  - Grand mal convulsion [None]
  - Condition aggravated [None]
  - Toxicity to various agents [None]
  - Pregnancy [None]
  - Anticonvulsant drug level decreased [None]
  - Fatigue [None]
  - Stress [None]
  - Maternal exposure during pregnancy [None]
